FAERS Safety Report 21761791 (Version 5)
Quarter: 2023Q4

REPORT INFORMATION
  Report Type: Spontaneous
  Country: US (occurrence: US)
  Receive Date: 20221221
  Receipt Date: 20231110
  Transmission Date: 20240110
  Serious: Yes (Other)
  Sender: FDA-Public Use
  Company Number: US-SA-SAC20221220000188

PATIENT
  Age: 69 Year
  Sex: Female

DRUGS (7)
  1. DUPIXENT [Suspect]
     Active Substance: DUPILUMAB
     Indication: Dermatitis atopic
     Dosage: 300 MG, QOW
     Route: 058
     Dates: start: 202110
  2. DUPIXENT [Suspect]
     Active Substance: DUPILUMAB
     Indication: Breast cancer female
  3. IBRANCE [Concomitant]
     Active Substance: PALBOCICLIB
     Dosage: UNK
  4. METFORMIN HYDROCHLORIDE [Concomitant]
     Active Substance: METFORMIN HYDROCHLORIDE
     Dosage: UNK
  5. ASCORBIC ACID [Concomitant]
     Active Substance: ASCORBIC ACID
     Dosage: UNK
  6. LETROZOLE [Concomitant]
     Active Substance: LETROZOLE
     Dosage: UNK
  7. GINKGO [GINKGO BILOBA LEAF] [Concomitant]
     Dosage: UNK

REACTIONS (21)
  - Deafness unilateral [Unknown]
  - Haematochezia [Unknown]
  - Cerebral disorder [Unknown]
  - Ear pain [Unknown]
  - Sleep disorder [Unknown]
  - Cough [Unknown]
  - Dry mouth [Unknown]
  - Oral pain [Unknown]
  - Eczema [Unknown]
  - Pruritus [Unknown]
  - Bloody discharge [Unknown]
  - Dizziness [Unknown]
  - Vertigo [Unknown]
  - Insomnia [Unknown]
  - Vision blurred [Unknown]
  - Herpes zoster [Unknown]
  - Pruritus [Unknown]
  - Erythema [Unknown]
  - Hypoaesthesia [Unknown]
  - Product dose omission in error [Unknown]
  - Product use in unapproved indication [Unknown]

NARRATIVE: CASE EVENT DATE: 20211001
